FAERS Safety Report 9166582 (Version 1)
Quarter: 2013Q1

REPORT INFORMATION
  Report Type: Spontaneous
  Country: CA (occurrence: CA)
  Receive Date: 20130315
  Receipt Date: 20130315
  Transmission Date: 20140127
  Serious: Yes (Hospitalization)
  Sender: FDA-Public Use
  Company Number: CA-AMGEN-CANSP2013017374

PATIENT
  Age: 38 Year
  Sex: Female

DRUGS (3)
  1. ENBREL [Suspect]
     Indication: RHEUMATOID ARTHRITIS
     Dosage: 50 MG, 1XWEEK
     Dates: start: 20120928
  2. TYLENOL /00020001/ [Concomitant]
     Dosage: UNK
  3. INDOMETHACIN                       /00003801/ [Concomitant]
     Dosage: UNK

REACTIONS (1)
  - Sensory loss [Unknown]
